FAERS Safety Report 25282911 (Version 1)
Quarter: 2025Q2

REPORT INFORMATION
  Report Type: Spontaneous
  Country: US (occurrence: US)
  Receive Date: 20250508
  Receipt Date: 20250508
  Transmission Date: 20250716
  Serious: Yes (Hospitalization, Other)
  Sender: AUROBINDO
  Company Number: US-AUROBINDO-AUR-APL-2025-023493

PATIENT
  Age: 30 Year
  Sex: Male

DRUGS (1)
  1. PREDNISOLONE [Suspect]
     Active Substance: PREDNISOLONE
     Indication: Hepatitis alcoholic
     Route: 065

REACTIONS (3)
  - Necrotising oesophagitis [Unknown]
  - Upper gastrointestinal haemorrhage [Unknown]
  - Candida infection [Unknown]
